FAERS Safety Report 6579153-5 (Version None)
Quarter: 2010Q1

REPORT INFORMATION
  Report Type: 
  Country: None (occurrence: None)
  Receive Date: 20100212
  Receipt Date: 20100201
  Transmission Date: 20100710
  Serious: Yes (Other)
  Sender: FDA-Public Use
  Company Number: US-JNJFOC-20100201587

PATIENT
  Age: 13 Year
  Sex: Male
  Weight: 63.5 kg

DRUGS (2)
  1. EXTRA STRENGTH TYLENOL [Suspect]
     Route: 048
  2. EXTRA STRENGTH TYLENOL [Suspect]
     Indication: HEADACHE
     Dosage: 500-1000 MG, TWO TIMES DAILY, EVERY 4-6 HOURS, ON MONDAYS AND FRIDAYS
     Route: 048

REACTIONS (2)
  - DEPENDENCE [None]
  - PRODUCT QUALITY ISSUE [None]
